FAERS Safety Report 25994851 (Version 1)
Quarter: 2025Q4

REPORT INFORMATION
  Report Type: Spontaneous
  Country: US (occurrence: US)
  Receive Date: 20251104
  Receipt Date: 20251104
  Transmission Date: 20260118
  Serious: Yes (Other)
  Sender: ALEXION PHARMACEUTICALS
  Company Number: US-AstraZeneca-CH-00981533A

PATIENT
  Sex: Male

DRUGS (1)
  1. FARXIGA [Suspect]
     Active Substance: DAPAGLIFLOZIN PROPANEDIOL
     Dosage: UNK
     Route: 065

REACTIONS (12)
  - Blood pressure increased [Unknown]
  - Type 2 diabetes mellitus [Unknown]
  - Illness [Unknown]
  - Irritability [Unknown]
  - Blood glucose decreased [Unknown]
  - Fatigue [Unknown]
  - Dizziness [Unknown]
  - Extrasystoles [Unknown]
  - Confusional state [Unknown]
  - Blood urea increased [Unknown]
  - Blood creatinine increased [Unknown]
  - Gait disturbance [Unknown]
